APPROVED DRUG PRODUCT: CINACALCET HYDROCHLORIDE
Active Ingredient: CINACALCET HYDROCHLORIDE
Strength: EQ 30MG BASE
Dosage Form/Route: TABLET;ORAL
Application: A210548 | Product #001
Applicant: LUPIN LTD
Approved: Jun 28, 2019 | RLD: No | RS: No | Type: DISCN